FAERS Safety Report 15399888 (Version 1)
Quarter: 2018Q3

REPORT INFORMATION
  Report Type: Spontaneous
  Country: US (occurrence: US)
  Receive Date: 20180919
  Receipt Date: 20180919
  Transmission Date: 20181010
  Serious: Yes (Other)
  Sender: FDA-Public Use
  Company Number: US-JNJFOC-20180908845

PATIENT
  Age: 69 Year
  Sex: Female
  Weight: 70.31 kg

DRUGS (3)
  1. FOSAMAX [Concomitant]
     Active Substance: ALENDRONATE SODIUM
     Indication: BONE DEVELOPMENT ABNORMAL
     Route: 065
  2. LISTERINE TOTAL CARE ZERO ALCOHOL ANTICAVITY FRESH MINT [Suspect]
     Active Substance: SODIUM FLUORIDE
     Indication: DENTAL DISORDER PROPHYLAXIS
     Dosage: A TEASPOON AND A HALF ONCE ON 09/04/2018; TWICE ON 09/05/2018
     Route: 048
     Dates: start: 20180904, end: 20180905
  3. LISTERINE TOTAL CARE ZERO ALCOHOL ANTICAVITY FRESH MINT [Suspect]
     Active Substance: SODIUM FLUORIDE
     Indication: ACCIDENTAL EXPOSURE TO PRODUCT
     Dosage: A TEASPOON AND A HALF ONCE ON 09/04/2018; TWICE ON 09/05/2018
     Route: 048
     Dates: start: 20180904, end: 20180905

REACTIONS (6)
  - Accidental exposure to product [Unknown]
  - Aspiration [Not Recovered/Not Resolved]
  - Dry mouth [Not Recovered/Not Resolved]
  - Tongue dry [Not Recovered/Not Resolved]
  - Tooth disorder [Not Recovered/Not Resolved]
  - Oral mucosal exfoliation [Not Recovered/Not Resolved]

NARRATIVE: CASE EVENT DATE: 201809
